FAERS Safety Report 5428217-8 (Version None)
Quarter: 2007Q3

REPORT INFORMATION
  Report Type: 
  Country: None (occurrence: None)
  Receive Date: 20070828
  Receipt Date: 20070816
  Transmission Date: 20080115
  Serious: Yes (Other)
  Sender: FDA-Public Use
  Company Number: US-PFIZER INC-2007068247

PATIENT
  Sex: Female
  Weight: 72.6 kg

DRUGS (3)
  1. NORVASC [Suspect]
     Indication: HYPERTENSION
  2. SYNTHROID [Concomitant]
  3. HYOSCYAMINE [Concomitant]

REACTIONS (4)
  - DIZZINESS [None]
  - FATIGUE [None]
  - HEARING IMPAIRED [None]
  - PANCREATIC DISORDER [None]
